FAERS Safety Report 12315145 (Version 3)
Quarter: 2017Q2

REPORT INFORMATION
  Report Type: Report from Study
  Country: IT (occurrence: IT)
  Receive Date: 20160428
  Receipt Date: 20170602
  Transmission Date: 20170830
  Serious: Yes (Other)
  Sender: FDA-Public Use
  Company Number: IT-VERTEX PHARMACEUTICALS-2016-001644

PATIENT
  Age: 34 Year
  Sex: Female

DRUGS (8)
  1. ORKAMBI [Suspect]
     Active Substance: IVACAFTOR\LUMACAFTOR
     Indication: CYSTIC FIBROSIS
     Dosage: 4 DF, QD
     Route: 048
     Dates: start: 20160210, end: 20160311
  2. LANTUS [Concomitant]
     Active Substance: INSULIN GLARGINE
     Dosage: BID
     Dates: start: 20080201
  3. NOVORAPID [Concomitant]
     Active Substance: INSULIN ASPART
     Dosage: 13 UT, BID
     Dates: start: 20080201
  4. CREON [Concomitant]
     Active Substance: PANCRELIPASE AMYLASE\PANCRELIPASE LIPASE\PANCRELIPASE PROTEASE
     Dosage: 3-4 CAPSULES AT MEAL
     Dates: start: 20040319
  5. PROMIXIN [Concomitant]
     Active Substance: COLISTIMETHATE SODIUM
  6. PULMOZYME [Concomitant]
     Active Substance: DORNASE ALFA
     Dosage: UNK
     Dates: start: 20150610
  7. AZITHROMYCIN ANHYDROUS. [Concomitant]
     Active Substance: AZITHROMYCIN ANHYDROUS
     Dosage: ONE PER DAY FOR THREE TIMES A WEEK
     Dates: start: 20041029
  8. COLECALCIFEROL [Concomitant]
     Active Substance: CHOLECALCIFEROL
     Dosage: UNK
     Dates: start: 20110801

REACTIONS (5)
  - Dyspnoea [Recovered/Resolved]
  - Diarrhoea [Recovered/Resolved]
  - Nausea [Recovered/Resolved]
  - Abdominal pain upper [Recovered/Resolved]
  - Vomiting [Not Recovered/Not Resolved]

NARRATIVE: CASE EVENT DATE: 20160210
